FAERS Safety Report 5171329-7 (Version None)
Quarter: 2006Q4

REPORT INFORMATION
  Report Type: 
  Country: None (occurrence: None)
  Receive Date: 20061213
  Receipt Date: 20060222
  Transmission Date: 20070319
  Serious: Yes (Other)
  Sender: FDA-Public Use
  Company Number: US-AMGEN-STX169938

PATIENT
  Sex: Female

DRUGS (10)
  1. ENBREL [Suspect]
     Indication: RHEUMATOID ARTHRITIS
     Route: 058
     Dates: start: 20050501
  2. PREDNISONE TAB [Concomitant]
     Route: 048
  3. CELEBREX [Concomitant]
     Route: 048
  4. ZOLOFT [Concomitant]
     Route: 048
  5. OXYCONTIN [Concomitant]
     Route: 048
  6. OXYCODONE HCL [Concomitant]
     Route: 048
  7. DSS [Concomitant]
     Route: 048
  8. ALBUTEROL [Concomitant]
  9. EFFEXOR [Concomitant]
     Route: 048
     Dates: start: 20051008
  10. MULTI-VITAMINS [Concomitant]

REACTIONS (1)
  - STAPHYLOCOCCAL INFECTION [None]
